FAERS Safety Report 16701585 (Version 2)
Quarter: 2019Q3

REPORT INFORMATION
  Report Type: Spontaneous
  Country: JP (occurrence: JP)
  Receive Date: 20190814
  Receipt Date: 20190830
  Transmission Date: 20191004
  Serious: Yes (Other)
  Sender: FDA-Public Use
  Company Number: JP-PFIZER INC-2019293482

PATIENT
  Age: 40 Year
  Sex: Female
  Weight: 55 kg

DRUGS (5)
  1. DEPAKENE-R [Suspect]
     Active Substance: VALPROATE SODIUM
     Dosage: 200 MG, 2X/DAY
     Dates: start: 20190606, end: 20190704
  2. EFFEXOR [Suspect]
     Active Substance: VENLAFAXINE HYDROCHLORIDE
     Dosage: 225 MG, 1X/DAY (3 CAPSULES)
     Route: 048
     Dates: start: 20190704, end: 20190707
  3. ABILIFY [Suspect]
     Active Substance: ARIPIPRAZOLE
     Dosage: 3 MG, 1X/DAY
     Route: 048
     Dates: start: 20180709, end: 20190704
  4. EFFEXOR [Suspect]
     Active Substance: VENLAFAXINE HYDROCHLORIDE
     Dosage: 150 MG, 1X/DAY (75MG 2 CAPSULES)
     Route: 048
     Dates: start: 20190606, end: 20190704
  5. EFFEXOR [Suspect]
     Active Substance: VENLAFAXINE HYDROCHLORIDE
     Dosage: 150 MG, 1X/DAY
     Route: 048
     Dates: start: 20190708, end: 20190708

REACTIONS (9)
  - Schizophrenia [Unknown]
  - Intentional dose omission [Unknown]
  - Tremor [Recovered/Resolved]
  - Dysstasia [Recovered/Resolved]
  - Visual brightness [Recovered/Resolved]
  - Vision blurred [Recovered/Resolved]
  - Insomnia [Recovered/Resolved]
  - Decreased appetite [Recovering/Resolving]
  - Dizziness [Unknown]

NARRATIVE: CASE EVENT DATE: 2019
